FAERS Safety Report 12566957 (Version 1)
Quarter: 2016Q3

REPORT INFORMATION
  Report Type: Spontaneous
  Country: SE (occurrence: SE)
  Receive Date: 20160718
  Receipt Date: 20160718
  Transmission Date: 20161109
  Serious: Yes (Hospitalization)
  Sender: FDA-Public Use
  Company Number: SE-TEVA-676264ISR

PATIENT
  Age: 78 Year
  Sex: Female

DRUGS (2)
  1. ATENOLOL. [Suspect]
     Active Substance: ATENOLOL
  2. EXELON [Suspect]
     Active Substance: RIVASTIGMINE TARTRATE

REACTIONS (1)
  - Cardiac arrest [Recovered/Resolved]
